FAERS Safety Report 22375326 (Version 1)
Quarter: 2023Q2

REPORT INFORMATION
  Report Type: Spontaneous
  Country: US (occurrence: US)
  Receive Date: 20230527
  Receipt Date: 20230527
  Transmission Date: 20230721
  Serious: No
  Sender: FDA-Public Use
  Company Number: US-PERRIGO-22US012008

PATIENT
  Age: 24 Year
  Weight: 72.562 kg

DRUGS (2)
  1. MINOXIDIL [Suspect]
     Active Substance: MINOXIDIL
     Indication: Alopecia
     Dosage: 1/2 CAPFUL, BID
     Route: 061
     Dates: start: 20220101, end: 20220904
  2. FINASTERIDE [Concomitant]
     Active Substance: FINASTERIDE
     Indication: Alopecia
     Dosage: UNK
     Route: 061
     Dates: start: 202106

REACTIONS (1)
  - Wrong technique in product usage process [Unknown]

NARRATIVE: CASE EVENT DATE: 20220830
